FAERS Safety Report 8453829-7 (Version None)
Quarter: 2012Q2

REPORT INFORMATION
  Report Type: 
  Country: None (occurrence: None)
  Receive Date: 20120620
  Receipt Date: 20120614
  Transmission Date: 20120825
  Serious: No
  Sender: FDA-Public Use
  Company Number: US-B.I. PHARMACEUTICALS,INC./RIDGEFIELD-2012-BP-13751BP

PATIENT
  Sex: Female

DRUGS (9)
  1. ALENDRONATE SODIUM [Concomitant]
     Indication: OSTEOPOROSIS
  2. SIMVASTATIN [Concomitant]
     Indication: BLOOD CHOLESTEROL INCREASED
  3. ALPRAZOLAM [Concomitant]
     Indication: PANIC ATTACK
  4. SPIRIVA [Suspect]
     Indication: CHRONIC OBSTRUCTIVE PULMONARY DISEASE
     Dosage: 18 MCG
     Route: 055
     Dates: start: 20070101
  5. METOPROLOL [Concomitant]
     Indication: HYPERTENSION
  6. LEVOTHYROXINE [Concomitant]
     Indication: HYPOTHYROIDISM
  7. ASPIRIN [Concomitant]
     Indication: CEREBROVASCULAR ACCIDENT
     Dosage: 81 MG
     Route: 048
  8. PLAVIX [Concomitant]
     Indication: CEREBROVASCULAR ACCIDENT
  9. LISINOPRIL [Concomitant]
     Indication: HYPERTENSION

REACTIONS (1)
  - THERAPEUTIC REACTION TIME DECREASED [None]
